FAERS Safety Report 16277931 (Version 8)
Quarter: 2023Q4

REPORT INFORMATION
  Report Type: Spontaneous
  Country: US (occurrence: US)
  Receive Date: 20190506
  Receipt Date: 20231009
  Transmission Date: 20240109
  Serious: Yes (Hospitalization, Other)
  Sender: FDA-Public Use
  Company Number: US-GILEAD-2019-0405253

PATIENT
  Age: 32 Year
  Sex: Female
  Weight: 81.646 kg

DRUGS (42)
  1. TRUVADA [Suspect]
     Active Substance: EMTRICITABINE\TENOFOVIR DISOPROXIL FUMARATE
     Indication: HIV infection
     Dosage: UNK
     Route: 048
     Dates: start: 2011, end: 201603
  2. TRUVADA [Suspect]
     Active Substance: EMTRICITABINE\TENOFOVIR DISOPROXIL FUMARATE
     Dosage: UNK
     Route: 048
     Dates: start: 2011, end: 201606
  3. TRUVADA [Suspect]
     Active Substance: EMTRICITABINE\TENOFOVIR DISOPROXIL FUMARATE
     Dosage: UNK
     Route: 048
     Dates: start: 20110830, end: 20160428
  4. TRUVADA [Suspect]
     Active Substance: EMTRICITABINE\TENOFOVIR DISOPROXIL FUMARATE
     Dosage: UNK
     Route: 048
     Dates: start: 20110830, end: 20160328
  5. TRUVADA [Suspect]
     Active Substance: EMTRICITABINE\TENOFOVIR DISOPROXIL FUMARATE
     Dosage: UNK
     Route: 048
     Dates: start: 20110830, end: 201303
  6. TRUVADA [Suspect]
     Active Substance: EMTRICITABINE\TENOFOVIR DISOPROXIL FUMARATE
     Dosage: UNK
     Route: 048
     Dates: start: 20130425, end: 201312
  7. TRUVADA [Suspect]
     Active Substance: EMTRICITABINE\TENOFOVIR DISOPROXIL FUMARATE
     Dosage: UNK
     Route: 048
     Dates: start: 20140108, end: 20140616
  8. TRUVADA [Suspect]
     Active Substance: EMTRICITABINE\TENOFOVIR DISOPROXIL FUMARATE
     Dosage: UNK
     Route: 048
     Dates: start: 20140830, end: 20141125
  9. TRUVADA [Suspect]
     Active Substance: EMTRICITABINE\TENOFOVIR DISOPROXIL FUMARATE
     Dosage: UNK
     Route: 048
     Dates: start: 20150122, end: 20160328
  10. BIKTARVY [Concomitant]
     Active Substance: BICTEGRAVIR SODIUM\EMTRICITABINE\TENOFOVIR ALAFENAMIDE FUMARATE
  11. DESCOVY [Concomitant]
     Active Substance: EMTRICITABINE\TENOFOVIR ALAFENAMIDE FUMARATE
  12. SYMTUZA [Concomitant]
     Active Substance: COBICISTAT\DARUNAVIR\EMTRICITABINE\TENOFOVIR ALAFENAMIDE
  13. ACETAMINOPHEN [Concomitant]
     Active Substance: ACETAMINOPHEN
  14. ACYCLOVIR [Concomitant]
     Active Substance: ACYCLOVIR
  15. ASPIRIN [Concomitant]
     Active Substance: ASPIRIN
  16. PENICILLIN G [Concomitant]
     Active Substance: PENICILLIN G
  17. PREDNISONE [Concomitant]
     Active Substance: PREDNISONE
  18. EPZICOM [Concomitant]
     Active Substance: ABACAVIR SULFATE\LAMIVUDINE
  19. NORVIR [Concomitant]
     Active Substance: RITONAVIR
  20. PREZCOBIX [Concomitant]
     Active Substance: COBICISTAT\DARUNAVIR ETHANOLATE
  21. PREZISTA [Concomitant]
     Active Substance: DARUNAVIR ETHANOLATE
  22. SUSTIVA [Concomitant]
     Active Substance: EFAVIRENZ
  23. OXYCODONE AND ACETAMINOPHEN [Concomitant]
     Active Substance: ACETAMINOPHEN\OXYCODONE HYDROCHLORIDE
  24. ADVAIR HFA [Concomitant]
     Active Substance: FLUTICASONE PROPIONATE\SALMETEROL XINAFOATE
  25. CEFUROXIME [Concomitant]
     Active Substance: CEFUROXIME
  26. CEPHALEXIN [Concomitant]
     Active Substance: CEPHALEXIN
  27. CLINDAMYCIN [Concomitant]
     Active Substance: CLINDAMYCIN
  28. DRONABINOL [Concomitant]
     Active Substance: DRONABINOL
  29. DOXYCYCLINE [Concomitant]
     Active Substance: DOXYCYCLINE
  30. DULOXETINE [Concomitant]
     Active Substance: DULOXETINE
  31. FLUTICASONE [Concomitant]
     Active Substance: FLUTICASONE
  32. GABAPENTIN [Concomitant]
     Active Substance: GABAPENTIN
  33. LOSARTAN [Concomitant]
     Active Substance: LOSARTAN
  34. CLONIDINE [Concomitant]
     Active Substance: CLONIDINE
  35. HYDRALAZINE [Concomitant]
     Active Substance: HYDRALAZINE HYDROCHLORIDE
  36. CARVEDILOL [Concomitant]
     Active Substance: CARVEDILOL
  37. ONDANSETRON [Concomitant]
     Active Substance: ONDANSETRON
  38. FUROSEMIDE [Concomitant]
     Active Substance: FUROSEMIDE
  39. ELIQUIS [Concomitant]
     Active Substance: APIXABAN
  40. LYRICA [Concomitant]
     Active Substance: PREGABALIN
  41. ABACAVIR SULFATE\LAMIVUDINE [Concomitant]
     Active Substance: ABACAVIR SULFATE\LAMIVUDINE
  42. TRIUMEQ [Concomitant]
     Active Substance: ABACAVIR SULFATE\DOLUTEGRAVIR SODIUM\LAMIVUDINE

REACTIONS (16)
  - End stage renal disease [Not Recovered/Not Resolved]
  - Chronic kidney disease [Unknown]
  - Renal failure [Unknown]
  - Tubulointerstitial nephritis [Unknown]
  - Acute kidney injury [Recovered/Resolved]
  - Tooth loss [Recovered/Resolved]
  - Economic problem [Unknown]
  - Emotional distress [Unknown]
  - Anhedonia [Unknown]
  - Bone density decreased [Recovered/Resolved]
  - Oedema peripheral [Not Recovered/Not Resolved]
  - Gait disturbance [Not Recovered/Not Resolved]
  - Depression [Not Recovered/Not Resolved]
  - Anxiety [Not Recovered/Not Resolved]
  - Asthenia [Unknown]
  - Pain [Unknown]

NARRATIVE: CASE EVENT DATE: 20160329
